FAERS Safety Report 17613247 (Version 1)
Quarter: 2020Q2

REPORT INFORMATION
  Report Type: Spontaneous
  Country: TR (occurrence: TR)
  Receive Date: 20200401
  Receipt Date: 20200401
  Transmission Date: 20200713
  Serious: Yes (Other)
  Sender: FDA-Public Use
  Company Number: TR-ACCORD-177927

PATIENT
  Age: 30 Year
  Sex: Female

DRUGS (3)
  1. FLUOROURACIL. [Suspect]
     Active Substance: FLUOROURACIL
     Indication: BLADDER ADENOCARCINOMA STAGE UNSPECIFIED
  2. IRINOTECAN [Suspect]
     Active Substance: IRINOTECAN
     Indication: BLADDER ADENOCARCINOMA STAGE UNSPECIFIED
  3. FOLINIC ACID [Suspect]
     Active Substance: LEUCOVORIN
     Indication: BLADDER ADENOCARCINOMA STAGE UNSPECIFIED

REACTIONS (1)
  - Hepatitis toxic [Unknown]
